FAERS Safety Report 12217275 (Version 2)
Quarter: 2016Q2

REPORT INFORMATION
  Report Type: Spontaneous
  Country: DE (occurrence: DE)
  Receive Date: 20160329
  Receipt Date: 20160413
  Transmission Date: 20160815
  Serious: Yes (Life-Threatening)
  Sender: FDA-Public Use
  Company Number: DE-JNJFOC-20160320925

PATIENT
  Age: 82 Year
  Sex: Male

DRUGS (1)
  1. ZYTIGA [Suspect]
     Active Substance: ABIRATERONE ACETATE
     Indication: PROSTATE CANCER
     Route: 048

REACTIONS (4)
  - Mental disorder due to a general medical condition [Not Recovered/Not Resolved]
  - Syncope [Recovering/Resolving]
  - Cardiac arrest [Not Recovered/Not Resolved]
  - Hypokalaemia [Not Recovered/Not Resolved]
